FAERS Safety Report 4311516-0 (Version None)
Quarter: 2004Q1

REPORT INFORMATION
  Report Type: 
  Country: None (occurrence: None)
  Receive Date: 20040304
  Receipt Date: 20040225
  Transmission Date: 20041129
  Serious: Yes (Hospitalization)
  Sender: FDA-Public Use
  Company Number: PHBS2004TW02802

PATIENT
  Age: 50 Year
  Sex: Male

DRUGS (2)
  1. BACLOFEN [Suspect]
     Dosage: 5 MG, QID
     Route: 065
  2. TRIAZOLAM [Concomitant]
     Indication: INSOMNIA
     Dosage: 0.25 MG/DAY
     Route: 065

REACTIONS (5)
  - AGITATION [None]
  - BLOOD GLUCOSE INCREASED [None]
  - CONFUSIONAL STATE [None]
  - HAEMOGLOBIN DECREASED [None]
  - TOXIC INDUCED ENCEPHALOPATHY [None]
